FAERS Safety Report 12339836 (Version 4)
Quarter: 2016Q3

REPORT INFORMATION
  Report Type: Report from Study
  Country: AU (occurrence: AU)
  Receive Date: 20160506
  Receipt Date: 20160718
  Transmission Date: 20161109
  Serious: Yes (Death, Hospitalization)
  Sender: FDA-Public Use
  Company Number: AU-ROCHE-1738306

PATIENT
  Age: 75 Year
  Sex: Female

DRUGS (2)
  1. ACTEMRA [Suspect]
     Active Substance: TOCILIZUMAB
     Indication: RHEUMATOID ARTHRITIS
     Route: 042
     Dates: start: 20101028
  2. ACTEMRA [Suspect]
     Active Substance: TOCILIZUMAB
     Dosage: THE LAST INFUSED DATE OF TOCILIZUMAB WAS 12/FEB/2016.
     Route: 042
     Dates: start: 20150327, end: 20160212

REACTIONS (5)
  - Pyrexia [Fatal]
  - Lower respiratory tract infection [Fatal]
  - Lower respiratory tract infection [Fatal]
  - Haematological malignancy [Fatal]
  - Anaemia [Unknown]

NARRATIVE: CASE EVENT DATE: 20160405
